FAERS Safety Report 14293468 (Version 1)
Quarter: 2017Q4

REPORT INFORMATION
  Report Type: Spontaneous
  Country: CN (occurrence: CN)
  Receive Date: 20171215
  Receipt Date: 20171215
  Transmission Date: 20180321
  Serious: Yes (Hospitalization)
  Sender: FDA-Public Use
  Company Number: CN-B.I. PHARMACEUTICALS,INC./RIDGEFIELD-2017-BI-065381

PATIENT
  Age: 6 Month
  Sex: Male
  Weight: 6.5 kg

DRUGS (4)
  1. CHYMOTRYPSIN FOR INJECTION [Concomitant]
     Route: 039
     Dates: start: 20171019, end: 20171020
  2. COMBIVENT [Suspect]
     Active Substance: ALBUTEROL SULFATE\IPRATROPIUM BROMIDE
     Route: 039
     Dates: start: 20171020, end: 20171020
  3. COMBIVENT [Suspect]
     Active Substance: ALBUTEROL SULFATE\IPRATROPIUM BROMIDE
     Indication: COUGH
     Route: 039
     Dates: start: 20171019, end: 20171020
  4. CHYMOTRYPSIN FOR INJECTION [Concomitant]
     Indication: COUGH
     Route: 039
     Dates: start: 20171019, end: 20171020

REACTIONS (1)
  - Flushing [Recovered/Resolved]

NARRATIVE: CASE EVENT DATE: 20171020
